FAERS Safety Report 8380962-0 (Version None)
Quarter: 2012Q2

REPORT INFORMATION
  Report Type: 
  Country: None (occurrence: None)
  Receive Date: 20120522
  Receipt Date: 20120509
  Transmission Date: 20120825
  Serious: Yes (Hospitalization)
  Sender: FDA-Public Use
  Company Number: AUR-APL-2012-02176

PATIENT
  Age: 73 Year
  Sex: Male

DRUGS (3)
  1. HEPARIN LOW MOLECULAR WEIGHT (DALTEPARIN SODIUM) [Concomitant]
  2. NAPROXEN [Suspect]
     Indication: ARTHRITIS
     Dosage: 1000 MG (500 MG, 2 IN 1 D), ORAL
     Route: 048
     Dates: start: 20120401, end: 20120422
  3. ACETAMINOPHEN W/ CODEINE [Concomitant]

REACTIONS (6)
  - LETHARGY [None]
  - DIZZINESS [None]
  - PALLOR [None]
  - HAEMOGLOBIN DECREASED [None]
  - DUODENAL ULCER [None]
  - SMALL INTESTINAL HAEMORRHAGE [None]
